FAERS Safety Report 6019131-8 (Version None)
Quarter: 2008Q4

REPORT INFORMATION
  Report Type: 
  Country: None (occurrence: None)
  Receive Date: 20081224
  Receipt Date: 20081223
  Transmission Date: 20090506
  Serious: Yes (Other)
  Sender: FDA-Public Use
  Company Number: US-WYE-H07393608

PATIENT

DRUGS (2)
  1. TORISEL [Suspect]
  2. COUMADIN [Suspect]

REACTIONS (2)
  - BLOOD CREATININE ABNORMAL [None]
  - GASTROINTESTINAL HAEMORRHAGE [None]
